FAERS Safety Report 7944081-7 (Version None)
Quarter: 2011Q4

REPORT INFORMATION
  Report Type: 
  Country: None (occurrence: None)
  Receive Date: 20111128
  Receipt Date: 20111123
  Transmission Date: 20120403
  Serious: Yes (Life-Threatening)
  Sender: FDA-Public Use
  Company Number: TN-ASTRAZENECA-2011SE69913

PATIENT
  Age: 6 Week
  Sex: Male

DRUGS (1)
  1. LIDOCAINE [Suspect]
     Indication: LOCAL ANAESTHESIA
     Route: 053

REACTIONS (6)
  - OVERDOSE [None]
  - APNOEA [None]
  - CYANOSIS [None]
  - UNRESPONSIVE TO STIMULI [None]
  - HYPERTONIA [None]
  - CONVULSION [None]
